FAERS Safety Report 21993199 (Version 2)
Quarter: 2024Q1

REPORT INFORMATION
  Report Type: Report from Study
  Country: US (occurrence: US)
  Receive Date: 20230215
  Receipt Date: 20240216
  Transmission Date: 20240410
  Serious: No
  Sender: FDA-Public Use
  Company Number: US-GSK-US2023AMR022089

PATIENT
  Sex: Female

DRUGS (1)
  1. BELIMUMAB [Suspect]
     Active Substance: BELIMUMAB
     Indication: Product used for unknown indication
     Dosage: UNK (CYC)
     Route: 058

REACTIONS (4)
  - Injection site pain [Unknown]
  - Injection site pain [Unknown]
  - Feeling hot [Unknown]
  - Pain [Recovered/Resolved]
